FAERS Safety Report 9708250 (Version 1)
Quarter: 2013Q4

REPORT INFORMATION
  Report Type: Spontaneous
  Country: US (occurrence: US)
  Receive Date: 20131125
  Receipt Date: 20131125
  Transmission Date: 20140711
  Serious: No
  Sender: FDA-Public Use
  Company Number: US-TARO-2013P1010434

PATIENT
  Age: 61 Year
  Sex: Female
  Weight: 68.04 kg

DRUGS (3)
  1. CARBAMAZEPINE TABLETS USP 200 MG [Suspect]
     Indication: CONVULSION
     Route: 048
     Dates: start: 201305, end: 20130608
  2. VITAMINS [Concomitant]
  3. PHENOBARBITAL [Concomitant]

REACTIONS (6)
  - Balance disorder [Not Recovered/Not Resolved]
  - Hypoaesthesia [Not Recovered/Not Resolved]
  - Paraesthesia [Not Recovered/Not Resolved]
  - Carpal tunnel syndrome [Not Recovered/Not Resolved]
  - Hyponatraemia [Not Recovered/Not Resolved]
  - Product substitution issue [Unknown]
